FAERS Safety Report 7035804-2 (Version None)
Quarter: 2010Q4

REPORT INFORMATION
  Report Type: 
  Country: None (occurrence: None)
  Receive Date: 20101008
  Receipt Date: 20100929
  Transmission Date: 20110411
  Serious: Yes (Other)
  Sender: FDA-Public Use
  Company Number: US-AMGEN-QUU398996

PATIENT
  Sex: Male
  Weight: 75.8 kg

DRUGS (1)
  1. NPLATE [Suspect]
     Indication: IDIOPATHIC THROMBOCYTOPENIC PURPURA
     Dates: start: 20081028, end: 20090804

REACTIONS (4)
  - ECCHYMOSIS [None]
  - SKIN LACERATION [None]
  - SKIN TOXICITY [None]
  - THERAPEUTIC RESPONSE DECREASED [None]
